FAERS Safety Report 5124744-1 (Version None)
Quarter: 2006Q4

REPORT INFORMATION
  Report Type: 
  Country: None (occurrence: None)
  Receive Date: 20061006
  Receipt Date: 20060928
  Transmission Date: 20070319
  Serious: Yes (Other)
  Sender: FDA-Public Use
  Company Number: HQWYE948224AUG06

PATIENT
  Age: 16 Year
  Sex: Female

DRUGS (8)
  1. CORDAREX (AMIODARONE, INJECTION) [Suspect]
     Indication: TACHYCARDIA
     Dosage: INTRAVENOUS; 300 MG; INFUSION; INTRAVENOUS
     Route: 042
     Dates: start: 20060101, end: 20060101
  2. CORDAREX (AMIODARONE, INJECTION) [Suspect]
     Indication: TACHYCARDIA
     Dosage: INTRAVENOUS; 300 MG; INFUSION; INTRAVENOUS
     Route: 042
     Dates: start: 20060812, end: 20060812
  3. CORDAREX (AMIODARONE, TABLET) [Suspect]
     Indication: TACHYCARDIA
     Dosage: 600 MG 1X PER 1 DAY; ORAL; 200 MG 1X PER 1 DAY; ORAL
     Route: 048
     Dates: start: 20060802, end: 20060814
  4. CORDAREX (AMIODARONE, TABLET) [Suspect]
     Indication: TACHYCARDIA
     Dosage: 600 MG 1X PER 1 DAY; ORAL; 200 MG 1X PER 1 DAY; ORAL
     Route: 048
     Dates: start: 20060815
  5. ESMOLOL HCL [Concomitant]
  6. FUROSEMIDE [Concomitant]
  7. SPIRONOLACTONE [Concomitant]
  8. THYROXXIN (LEVOTHYROXINE SODIUM) [Concomitant]

REACTIONS (3)
  - CONVULSION [None]
  - HEART RATE DECREASED [None]
  - INFUSION RELATED REACTION [None]
